FAERS Safety Report 4509570-6 (Version None)
Quarter: 2004Q4

REPORT INFORMATION
  Report Type: 
  Country: None (occurrence: None)
  Receive Date: 20041119
  Receipt Date: 20041101
  Transmission Date: 20050328
  Serious: Yes (Other)
  Sender: FDA-Public Use
  Company Number: USA041182840

PATIENT
  Sex: Female

DRUGS (3)
  1. CYMBALTA [Suspect]
     Indication: ANXIETY
     Dosage: 60 MG DAY
     Dates: start: 20040907, end: 20041028
  2. PROVIGIL [Concomitant]
  3. EFFEXOR [Concomitant]

REACTIONS (5)
  - LOSS OF CONSCIOUSNESS [None]
  - MIGRAINE [None]
  - MOOD SWINGS [None]
  - RASH ERYTHEMATOUS [None]
  - URTICARIA [None]
